FAERS Safety Report 5765906-X (Version None)
Quarter: 2008Q2

REPORT INFORMATION
  Report Type: 
  Country: None (occurrence: None)
  Receive Date: 20080611
  Receipt Date: 20070501
  Transmission Date: 20081010
  Serious: No
  Sender: FDA-Public Use
  Company Number: US-BRISTOL-MYERS SQUIBB COMPANY-13766365

PATIENT
  Sex: Female

DRUGS (1)
  1. SINEMET [Suspect]

REACTIONS (4)
  - OEDEMA PERIPHERAL [None]
  - SKIN CHAPPED [None]
  - SKIN HAEMORRHAGE [None]
  - SMOKER [None]
